FAERS Safety Report 8526880 (Version 3)
Quarter: 2013Q2

REPORT INFORMATION
  Report Type: Spontaneous
  Country: US (occurrence: US)
  Receive Date: 20120424
  Receipt Date: 20130425
  Transmission Date: 20140414
  Serious: Yes (Hospitalization)
  Sender: FDA-Public Use
  Company Number: US-BIOGENIDEC-2012BI013420

PATIENT
  Age: 33 Year
  Sex: Female

DRUGS (2)
  1. AVONEX [Suspect]
     Indication: MULTIPLE SCLEROSIS
     Route: 030
     Dates: start: 200507, end: 201202
  2. AVONEX [Suspect]
     Indication: MULTIPLE SCLEROSIS
     Route: 030

REACTIONS (5)
  - Pelvic prolapse [Recovered/Resolved]
  - Uterine prolapse [Recovered/Resolved]
  - Bladder prolapse [Recovered/Resolved]
  - Cardiac disorder [Not Recovered/Not Resolved]
  - Device breakage [Unknown]
